FAERS Safety Report 24124711 (Version 1)
Quarter: 2024Q3

REPORT INFORMATION
  Report Type: Spontaneous
  Country: US (occurrence: US)
  Receive Date: 20240723
  Receipt Date: 20240723
  Transmission Date: 20241017
  Serious: No
  Sender: MERCK
  Company Number: US-009507513-2406USA008674

PATIENT
  Age: 1 Year

DRUGS (2)
  1. VARIVAX [Suspect]
     Active Substance: VARICELLA-ZOSTER VIRUS STRAIN OKA/MERCK LIVE ANTIGEN
     Indication: Prophylaxis
     Dates: start: 20240624
  2. STERILE DILUENT (WATER) [Suspect]
     Active Substance: WATER
     Dosage: OVER 1/4TH DOSE, ONCE
     Dates: start: 20240624

REACTIONS (5)
  - Accidental underdose [Unknown]
  - Device leakage [Unknown]
  - Device connection issue [Unknown]
  - Poor quality device used [Unknown]
  - No adverse event [Unknown]

NARRATIVE: CASE EVENT DATE: 20240624
